FAERS Safety Report 9494725 (Version 1)
Quarter: 2013Q3

REPORT INFORMATION
  Report Type: Spontaneous
  Country: US (occurrence: None)
  Receive Date: 20130830
  Receipt Date: 20130830
  Transmission Date: 20140515
  Serious: Yes (Life-Threatening, Hospitalization)
  Sender: FDA-Public Use
  Company Number: None

PATIENT
  Age: 66 Year
  Sex: Female
  Weight: 117.94 kg

DRUGS (1)
  1. CELEBREX [Suspect]
     Indication: SURGERY
     Dosage: DAILY, ^O^

REACTIONS (1)
  - Carotid endarterectomy [None]
